FAERS Safety Report 25429406 (Version 2)
Quarter: 2025Q2

REPORT INFORMATION
  Report Type: Spontaneous
  Country: PL (occurrence: PL)
  Receive Date: 20250612
  Receipt Date: 20250618
  Transmission Date: 20250717
  Serious: Yes (Other)
  Sender: PFIZER
  Company Number: PL-MLMSERVICE-20250529-PI524357-00270-1

PATIENT
  Sex: Female

DRUGS (6)
  1. METHYLPREDNISOLONE [Suspect]
     Active Substance: METHYLPREDNISOLONE
     Indication: Dermatomyositis
     Dosage: 8 MG, 1X/DAY (UP TO 8 MG DAILY, HIGHER DOSES WERE ADMINISTERED WHEN EXACERBATIONS)
  2. METHYLPREDNISOLONE [Suspect]
     Active Substance: METHYLPREDNISOLONE
     Indication: Condition aggravated
  3. AZATHIOPRINE [Concomitant]
     Active Substance: AZATHIOPRINE
     Indication: Dermatomyositis
  4. AZATHIOPRINE [Concomitant]
     Active Substance: AZATHIOPRINE
     Indication: Condition aggravated
  5. HUMAN IMMUNOGLOBULIN G [Concomitant]
     Active Substance: HUMAN IMMUNOGLOBULIN G
     Indication: Dermatomyositis
  6. HUMAN IMMUNOGLOBULIN G [Concomitant]
     Active Substance: HUMAN IMMUNOGLOBULIN G
     Indication: Condition aggravated

REACTIONS (9)
  - Renal neoplasm [Unknown]
  - Hyperlipidaemia [Unknown]
  - Pericardial effusion [Unknown]
  - Polyneuropathy [Unknown]
  - Cataract [Unknown]
  - Osteoporosis [Unknown]
  - Diabetes mellitus [Unknown]
  - Adrenal insufficiency [Unknown]
  - Hypertension [Unknown]
